FAERS Safety Report 4702937-2 (Version None)
Quarter: 2005Q2

REPORT INFORMATION
  Report Type: 
  Country: None (occurrence: None)
  Receive Date: 20050629
  Receipt Date: 20050621
  Transmission Date: 20051028
  Serious: Yes (Hospitalization)
  Sender: FDA-Public Use
  Company Number: 200512081FR

PATIENT
  Age: 62 Year
  Sex: Male

DRUGS (17)
  1. TARGOCID [Suspect]
     Indication: RESPIRATORY TRACT INFECTION
     Route: 042
     Dates: start: 20050511, end: 20050523
  2. TARGOCID [Suspect]
     Indication: SUPERINFECTION
     Route: 042
     Dates: start: 20050511, end: 20050523
  3. LASIX [Suspect]
     Indication: RESPIRATORY TRACT INFECTION
     Route: 042
     Dates: start: 20050518, end: 20050521
  4. AUGMENTIN [Suspect]
     Indication: SUPERINFECTION
     Route: 042
     Dates: start: 20050506, end: 20050511
  5. SOLUPRED [Concomitant]
     Route: 048
  6. NEURONTIN [Concomitant]
     Route: 048
  7. SURBRONC [Concomitant]
  8. DILTIAZEM HYDROCHLORIDE [Concomitant]
  9. KARDEGIC [Concomitant]
  10. FUROSEMIDE [Concomitant]
  11. IKOREL [Concomitant]
     Route: 048
  12. COZAAR [Concomitant]
     Route: 048
  13. COMBIVENT [Concomitant]
  14. SERETIDE [Concomitant]
  15. ZOCOR [Concomitant]
  16. ART [Concomitant]
  17. AMPECYCLAL [Concomitant]

REACTIONS (2)
  - ACUTE GENERALISED EXANTHEMATOUS PUSTULOSIS [None]
  - RASH PUSTULAR [None]
